FAERS Safety Report 5796710-4 (Version None)
Quarter: 2008Q2

REPORT INFORMATION
  Report Type: 
  Country: None (occurrence: None)
  Receive Date: 20080630
  Receipt Date: 20080630
  Transmission Date: 20081010
  Serious: No
  Sender: FDA-Public Use
  Company Number: None

PATIENT
  Age: 59 Year
  Sex: Female
  Weight: 68.9467 kg

DRUGS (4)
  1. FEXOFENADINE [Suspect]
     Indication: MULTIPLE ALLERGIES
  2. FEXOFENADINE [Suspect]
     Indication: SINUS DISORDER
  3. CLARINEX D 24 HOUR [Suspect]
     Indication: MULTIPLE ALLERGIES
  4. CLARINEX D 24 HOUR [Suspect]
     Indication: SINUS DISORDER

REACTIONS (3)
  - BALANCE DISORDER [None]
  - DIZZINESS [None]
  - URTICARIA [None]
